FAERS Safety Report 16540696 (Version 2)
Quarter: 2019Q3

REPORT INFORMATION
  Report Type: Spontaneous
  Country: US (occurrence: US)
  Receive Date: 20190708
  Receipt Date: 20190906
  Transmission Date: 20191004
  Serious: Yes (Death, Other)
  Sender: FDA-Public Use
  Company Number: US-PFIZER INC-2019282157

PATIENT
  Age: 51 Year
  Sex: Male

DRUGS (1)
  1. VANCOMYCIN HCL [Suspect]
     Active Substance: VANCOMYCIN HYDROCHLORIDE
     Indication: ENTEROCOCCAL BACTERAEMIA
     Dosage: UNK

REACTIONS (3)
  - Sepsis [Fatal]
  - Drug resistance [Fatal]
  - Septic shock [Fatal]
